FAERS Safety Report 8018696-4 (Version None)
Quarter: 2012Q1

REPORT INFORMATION
  Report Type: 
  Country: None (occurrence: None)
  Receive Date: 20120103
  Receipt Date: 20120103
  Transmission Date: 20120608
  Serious: No
  Sender: FDA-Public Use
  Company Number: None

PATIENT
  Age: 6 Year
  Sex: Male
  Weight: 24.04 kg

DRUGS (1)
  1. SINGULAIR [Suspect]
     Indication: MULTIPLE ALLERGIES
     Dosage: ONE CHEW TAB
     Dates: start: 20110920, end: 20111120

REACTIONS (4)
  - SCHOOL REFUSAL [None]
  - AGGRESSION [None]
  - ABNORMAL BEHAVIOUR [None]
  - DEPRESSED MOOD [None]
